FAERS Safety Report 17941686 (Version 1)
Quarter: 2020Q2

REPORT INFORMATION
  Report Type: Spontaneous
  Country: US (occurrence: US)
  Receive Date: 20200624
  Receipt Date: 20200624
  Transmission Date: 20200714
  Serious: Yes (Life-Threatening, Hospitalization)
  Sender: FDA-Public Use
  Company Number: None

PATIENT
  Age: 57 Year
  Sex: Female
  Weight: 62 kg

DRUGS (1)
  1. TRULICITY [Suspect]
     Active Substance: DULAGLUTIDE
     Indication: DIABETES MELLITUS
     Route: 058
     Dates: start: 20200620, end: 20200623

REACTIONS (5)
  - Hepatic necrosis [None]
  - Acute kidney injury [None]
  - Rhabdomyolysis [None]
  - Diabetic ketoacidosis [None]
  - Lactic acidosis [None]

NARRATIVE: CASE EVENT DATE: 20200622
